FAERS Safety Report 14094960 (Version 1)
Quarter: 2017Q4

REPORT INFORMATION
  Report Type: Spontaneous
  Country: US (occurrence: US)
  Receive Date: 20171016
  Receipt Date: 20171016
  Transmission Date: 20180321
  Serious: No
  Sender: FDA-Public Use
  Company Number: US-NOVOPROD-559499

PATIENT
  Age: 60 Year
  Sex: Male

DRUGS (1)
  1. TRESIBA [Suspect]
     Active Substance: INSULIN DEGLUDEC
     Indication: DIABETES MELLITUS MANAGEMENT
     Dosage: 14 U, QD
     Route: 058
     Dates: start: 201707

REACTIONS (1)
  - Headache [Unknown]

NARRATIVE: CASE EVENT DATE: 201707
